FAERS Safety Report 20608767 (Version 1)
Quarter: 2022Q1

REPORT INFORMATION
  Report Type: Report from Study
  Country: JP (occurrence: JP)
  Receive Date: 20220317
  Receipt Date: 20220317
  Transmission Date: 20220423
  Serious: Yes (Death, Hospitalization)
  Sender: FDA-Public Use
  Company Number: JP-DSJP-DSJ-2021-132795AA

PATIENT
  Age: 74 Year
  Sex: Male
  Weight: 62 kg

DRUGS (25)
  1. ENHERTU [Suspect]
     Active Substance: FAM-TRASTUZUMAB DERUXTECAN-NXKI
     Indication: Gastric cancer recurrent
     Dosage: 6.4 MG/KG, ONCE EVERY 3 WK
     Route: 041
     Dates: start: 20210813, end: 20210813
  2. ENHERTU [Suspect]
     Active Substance: FAM-TRASTUZUMAB DERUXTECAN-NXKI
     Indication: HER2 positive gastric cancer
     Dosage: 5.4 MG/KG, ONCE EVERY 3 WK
     Route: 041
     Dates: start: 20210915, end: 20210915
  3. ENHERTU [Suspect]
     Active Substance: FAM-TRASTUZUMAB DERUXTECAN-NXKI
     Dosage: 5.4 MG/KG, ONCE EVERY 3 WK
     Route: 041
     Dates: start: 20211006, end: 20211006
  4. ENHERTU [Suspect]
     Active Substance: FAM-TRASTUZUMAB DERUXTECAN-NXKI
     Dosage: 5.4 MG/KG, ONCE EVERY 3 WK
     Route: 041
     Dates: start: 20211027, end: 20211027
  5. ENHERTU [Suspect]
     Active Substance: FAM-TRASTUZUMAB DERUXTECAN-NXKI
     Dosage: 4.4 MG/KG, ONCE EVERY 3 WK
     Route: 041
     Dates: start: 20211117, end: 20211117
  6. CALONAL [Concomitant]
     Active Substance: ACETAMINOPHEN
     Indication: Analgesic therapy
     Dosage: 200 MG, QD, AFTER BREAKFAST AND DINNER
     Route: 048
  7. REBAMIPIDE [Concomitant]
     Active Substance: REBAMIPIDE
     Dosage: UNK
     Route: 065
  8. NEXIUM [Concomitant]
     Active Substance: ESOMEPRAZOLE MAGNESIUM
     Dosage: UNK
     Route: 065
  9. HERBALS [Concomitant]
     Active Substance: HERBALS
     Indication: Neuropathy peripheral
     Dosage: 2.5 G, QD, AFTER BREAKFAST
     Route: 048
  10. AZILSARTAN KAMEDOXOMIL [Concomitant]
     Active Substance: AZILSARTAN KAMEDOXOMIL
     Indication: Hypertension
     Dosage: 20 MG, QD, AFTER BREAKFAST
     Route: 048
  11. DECADRON [Concomitant]
     Active Substance: DEXAMETHASONE
     Indication: Malaise
     Dosage: 8.0MG/DAY
     Route: 048
     Dates: start: 20210814, end: 20210816
  12. DECADRON [Concomitant]
     Active Substance: DEXAMETHASONE
     Dosage: 1 MG, QD, AFTER BREAKFAST
     Route: 048
  13. SPIRONOLACTONE [Concomitant]
     Active Substance: SPIRONOLACTONE
     Indication: Hypertension
     Dosage: 50 MG, QD, AFTER BREAKFAST
     Route: 048
  14. REPAGLINIDE [Concomitant]
     Active Substance: REPAGLINIDE
     Indication: Diabetes mellitus
     Dosage: 0.25 MG, BID, JUST BEFORE BREAKFAST AND LUNCH
     Route: 048
  15. PREGABALIN [Concomitant]
     Active Substance: PREGABALIN
     Indication: Spinal stenosis
     Dosage: 25MG AFTER BREAKFAST, 50MG BEFORE BEDTIME, BID
     Route: 048
  16. LIMAPROST [Concomitant]
     Active Substance: LIMAPROST
     Indication: Spinal stenosis
     Dosage: 5 UG, TID, AFTER EACH MEAL
     Route: 048
  17. CALBLOCK [Concomitant]
     Active Substance: AZELNIDIPINE
     Indication: Hypertension
     Dosage: 16 MG, QD, AFTER BREAKFAST
     Route: 048
  18. APREPITANT [Concomitant]
     Active Substance: APREPITANT
     Dosage: 125MG/DAY
     Route: 048
     Dates: start: 20210813, end: 20210813
  19. APREPITANT [Concomitant]
     Active Substance: APREPITANT
     Dosage: UNK
     Route: 048
     Dates: start: 20210814, end: 20210815
  20. APREPITANT [Concomitant]
     Active Substance: APREPITANT
     Dosage: UNK
     Route: 048
  21. ALOXI [Concomitant]
     Active Substance: PALONOSETRON HYDROCHLORIDE
     Dosage: 0.75MG/DAY
     Route: 042
     Dates: start: 20210813, end: 20210813
  22. ALOXI [Concomitant]
     Active Substance: PALONOSETRON HYDROCHLORIDE
     Dosage: 0.75MG/DAY
     Route: 042
  23. DEXAMETHASONE [Concomitant]
     Active Substance: DEXAMETHASONE
     Dosage: 9.9MG/DAY
     Route: 042
  24. LANSOPRAZOLE [Concomitant]
     Active Substance: LANSOPRAZOLE
     Indication: Gastritis prophylaxis
     Dosage: 15 MG, QD, AFTER BREAKFAST
     Route: 048
  25. DEXAMETHASONE SODIUM PHOSPHATE [Concomitant]
     Active Substance: DEXAMETHASONE SODIUM PHOSPHATE
     Dosage: 9.9MG/DAY
     Route: 042
     Dates: start: 20210813, end: 20210813

REACTIONS (8)
  - Death [Fatal]
  - Febrile neutropenia [Recovered/Resolved]
  - Decreased appetite [Recovered/Resolved]
  - Weight decreased [Recovering/Resolving]
  - Anaemia [Recovered/Resolved]
  - Thrombocytopenia [Recovered/Resolved]
  - Leukopenia [Recovered/Resolved]
  - Adverse event [Unknown]

NARRATIVE: CASE EVENT DATE: 20210818
